FAERS Safety Report 24421751 (Version 1)
Quarter: 2024Q4

REPORT INFORMATION
  Report Type: Spontaneous
  Country: FR (occurrence: FR)
  Receive Date: 20241010
  Receipt Date: 20241010
  Transmission Date: 20250114
  Serious: Yes (Death, Hospitalization, Other)
  Sender: AUROBINDO
  Company Number: FR-ACTAVIS-2011B-10393

PATIENT
  Age: 79 Year
  Sex: Male

DRUGS (5)
  1. AMIODARONE [Suspect]
     Active Substance: AMIODARONE
     Indication: Atrial fibrillation
     Dosage: UNK
     Route: 065
  2. DOCETAXEL [Suspect]
     Active Substance: DOCETAXEL
     Indication: Prostate cancer metastatic
     Dosage: 35 MILLIGRAM/SQ. METER [35 MG/M2 INFUSION OVER 1HR ON DAYS 1 +AMP; 8, EVERY 21 DAYS]
     Route: 065
  3. DRONEDARONE [Interacting]
     Active Substance: DRONEDARONE
     Indication: Atrial fibrillation
     Dosage: 800 MILLIGRAM, ONCE A DAY
     Route: 003
  4. FLUINDIONE [Concomitant]
     Active Substance: FLUINDIONE
     Indication: Product used for unknown indication
     Dosage: UNK
     Route: 065
  5. PRAVASTATIN [Concomitant]
     Active Substance: PRAVASTATIN
     Indication: Product used for unknown indication
     Dosage: UNK
     Route: 065

REACTIONS (18)
  - Acute respiratory failure [Fatal]
  - Circulatory collapse [Fatal]
  - Diarrhoea [Fatal]
  - Drug clearance decreased [Fatal]
  - Erythema [Fatal]
  - Febrile neutropenia [Fatal]
  - Gastrointestinal inflammation [Fatal]
  - Infection [Fatal]
  - Mucosal inflammation [Fatal]
  - Neutropenia [Fatal]
  - Pyrexia [Fatal]
  - Septic shock [Fatal]
  - Stomatitis [Fatal]
  - Sepsis [Fatal]
  - Conjunctivitis [Not Recovered/Not Resolved]
  - Keratitis [Not Recovered/Not Resolved]
  - Atrial fibrillation [Unknown]
  - Hypersensitivity pneumonitis [Unknown]
